FAERS Safety Report 16926538 (Version 2)
Quarter: 2019Q4

REPORT INFORMATION
  Report Type: Spontaneous
  Country: US (occurrence: US)
  Receive Date: 20191016
  Receipt Date: 20191111
  Transmission Date: 20200122
  Serious: Yes (Other)
  Sender: FDA-Public Use
  Company Number: US-BIOCODEX SA-201901104

PATIENT

DRUGS (1)
  1. DIACOMIT [Suspect]
     Active Substance: STIRIPENTOL
     Indication: PRODUCT USED FOR UNKNOWN INDICATION
     Dosage: 100 MG TWICE DAILY
     Route: 065
     Dates: start: 20190710

REACTIONS (2)
  - Seizure [Unknown]
  - Hypersomnia [Unknown]

NARRATIVE: CASE EVENT DATE: 20190929
